FAERS Safety Report 21599151 (Version 1)
Quarter: 2022Q4

REPORT INFORMATION
  Report Type: Spontaneous
  Country: CN (occurrence: CN)
  Receive Date: 20221115
  Receipt Date: 20221115
  Transmission Date: 20230113
  Serious: Yes (Hospitalization)
  Sender: FDA-Public Use
  Company Number: CN-BAYER-2022A155059

PATIENT
  Age: 72 Year
  Sex: Female
  Weight: 43.5 kg

DRUGS (1)
  1. STIVARGA [Suspect]
     Active Substance: REGORAFENIB
     Indication: Bile duct cancer
     Dosage: 80 MG, QD
     Route: 048
     Dates: start: 20221005, end: 20221018

REACTIONS (3)
  - Rash erythematous [Recovering/Resolving]
  - Skin warm [None]
  - Off label use [None]

NARRATIVE: CASE EVENT DATE: 20221005
